FAERS Safety Report 24350597 (Version 1)
Quarter: 2024Q3

REPORT INFORMATION
  Report Type: Report from Study
  Country: UA (occurrence: UA)
  Receive Date: 20240923
  Receipt Date: 20240923
  Transmission Date: 20241017
  Serious: Yes (Death, Other)
  Sender: PFIZER
  Company Number: UA-TAKEDA-2024TUS093731

PATIENT
  Age: 45 Year
  Sex: Female

DRUGS (1)
  1. ADCETRIS [Suspect]
     Active Substance: BRENTUXIMAB VEDOTIN
     Indication: Anaplastic large cell lymphoma T- and null-cell types refractory
     Dosage: UNK UNK, Q3WEEKS
     Route: 042
     Dates: start: 20240704

REACTIONS (1)
  - Death [Fatal]
